FAERS Safety Report 8505111-7 (Version None)
Quarter: 2012Q3

REPORT INFORMATION
  Report Type: 
  Country: None (occurrence: None)
  Receive Date: 20120712
  Receipt Date: 20120704
  Transmission Date: 20120928
  Serious: Yes (Other)
  Sender: FDA-Public Use
  Company Number: PHHY2012BR058536

PATIENT
  Sex: Male

DRUGS (3)
  1. TOPIRAMATE [Concomitant]
     Dosage: 100 MG
  2. TEGRETOL [Suspect]
     Indication: CONVULSION
     Dosage: 200 MG, TID
  3. TEGRETOL [Suspect]
     Indication: CONVULSION
     Dosage: 400 MG, BID

REACTIONS (4)
  - DYSURIA [None]
  - DYSPHAGIA [None]
  - URETHRITIS [None]
  - WRONG TECHNIQUE IN DRUG USAGE PROCESS [None]
